FAERS Safety Report 9512947 (Version 2)
Quarter: 2013Q3

REPORT INFORMATION
  Report Type: Spontaneous
  Country: US (occurrence: US)
  Receive Date: 20130910
  Receipt Date: 20130930
  Transmission Date: 20140515
  Serious: Yes (Death)
  Sender: FDA-Public Use
  Company Number: US-ASTELLAS-2013US008904

PATIENT
  Sex: Male

DRUGS (2)
  1. XTANDI [Suspect]
     Indication: PRODUCT USED FOR UNKNOWN INDICATION
     Dosage: 160 MG, UID/QD
     Route: 048
     Dates: start: 20121030
  2. XTANDI [Suspect]
     Dosage: 80 MG, UID/QD
     Route: 048
     Dates: start: 20130703

REACTIONS (2)
  - Death [Fatal]
  - Prostatic specific antigen abnormal [Unknown]
